FAERS Safety Report 8837874 (Version 1)
Quarter: 2012Q4

REPORT INFORMATION
  Report Type: 
  Country: CH (occurrence: CH)
  Receive Date: 20121012
  Receipt Date: 20121012
  Transmission Date: 20130627
  Serious: Yes (Hospitalization)
  Sender: FDA-Public Use
  Company Number: CH-CELGENEUS-151-21880-12100050

PATIENT
  Age: 58 Year
  Sex: Male
  Weight: 70 kg

DRUGS (4)
  1. REVLIMID [Suspect]
     Indication: MDS
     Dosage: 10 Milligram
     Route: 048
     Dates: start: 20120801, end: 20120809
  2. ASPIRIN CARDIO [Concomitant]
     Indication: THROMBOCYTOSIS
     Dosage: 100 Milligram
     Route: 048
     Dates: start: 20120705, end: 20120809
  3. METFORMIN [Concomitant]
     Indication: TYPE II DIABETES MELLITUS
     Dosage: 1000 Milligram
     Route: 048
     Dates: start: 201111, end: 20120809
  4. AMARYL [Concomitant]
     Indication: TYPE II DIABETES MELLITUS
     Dosage: 2 Milligram
     Route: 048
     Dates: start: 201111, end: 20120809

REACTIONS (4)
  - Chromaturia [Recovered/Resolved]
  - Haemolysis [Unknown]
  - Haemolytic anaemia [Unknown]
  - Asthenia [Recovered/Resolved]
